FAERS Safety Report 6111058-6 (Version None)
Quarter: 2009Q1

REPORT INFORMATION
  Report Type: 
  Country: None (occurrence: None)
  Receive Date: 20090309
  Receipt Date: 20090309
  Transmission Date: 20090719
  Serious: Yes (Disabling, Other)
  Sender: FDA-Public Use
  Company Number: None

PATIENT
  Age: 56 Year
  Sex: Female
  Weight: 47.6277 kg

DRUGS (1)
  1. ACTONEL [Suspect]
     Indication: OSTEOPOROSIS
     Dosage: 1 PILL 1 TIME PER MONTH PO
     Route: 048
     Dates: start: 20090301, end: 20090301

REACTIONS (10)
  - ACTIVITIES OF DAILY LIVING IMPAIRED [None]
  - ARTHRALGIA [None]
  - BACK PAIN [None]
  - DRUG INEFFECTIVE [None]
  - FEELING ABNORMAL [None]
  - IMPAIRED WORK ABILITY [None]
  - JOINT SWELLING [None]
  - MUSCULOSKELETAL CHEST PAIN [None]
  - NECK PAIN [None]
  - PAINFUL RESPIRATION [None]
